FAERS Safety Report 7608424-6 (Version None)
Quarter: 2011Q3

REPORT INFORMATION
  Report Type: 
  Country: None (occurrence: None)
  Receive Date: 20110714
  Receipt Date: 20110707
  Transmission Date: 20111222
  Serious: Yes (Other)
  Sender: FDA-Public Use
  Company Number: DE-B.I. PHARMACEUTICALS,INC./RIDGEFIELD-2011-DE-03787DE

PATIENT
  Sex: Female
  Weight: 112 kg

DRUGS (11)
  1. BLOPRESS 16 [Concomitant]
     Dosage: 0.5 ANZ
  2. GASTROSIL RET. [Concomitant]
     Dosage: 1 ANZ
  3. METOHEXAL SUCC 142 [Concomitant]
     Dosage: 1/3-0-1/3
  4. TORASEMID 20 [Concomitant]
     Dosage: 2 ANZ
  5. GELUSIL LAC [Concomitant]
     Dosage: IF REQUIRED
  6. ANTICOAGULATION THERAPY [Concomitant]
  7. METAMIZOL [Concomitant]
     Dosage: 3 ANZ
  8. ALLOPURINOL [Concomitant]
     Dosage: 0.5 ANZ
  9. PRADAXA [Suspect]
     Indication: KNEE OPERATION
     Dosage: 220 MG
     Route: 048
     Dates: start: 20101109
  10. OMEP 20 [Concomitant]
     Dosage: 1 ANZ
  11. RAMIPRIL 5 [Concomitant]
     Dosage: 2 ANZ

REACTIONS (3)
  - PROTHROMBIN TIME PROLONGED [None]
  - GASTROINTESTINAL HAEMORRHAGE [None]
  - GASTRIC HAEMORRHAGE [None]
